FAERS Safety Report 9737255 (Version 2)
Quarter: 2014Q1

REPORT INFORMATION
  Report Type: Spontaneous
  Country: GB (occurrence: GB)
  Receive Date: 20131206
  Receipt Date: 20140123
  Transmission Date: 20141002
  Serious: Yes (Death)
  Sender: FDA-Public Use
  Company Number: PHHY2013GB139714

PATIENT
  Age: 34 Year
  Sex: Male

DRUGS (3)
  1. DIAZEPAM [Suspect]
     Indication: ANXIETY
     Dosage: 10 MG, UNK
     Route: 048
  2. METHADONE [Interacting]
  3. ZYPREXA [Suspect]
     Indication: SCHIZOPHRENIA
     Dosage: 20 MG, UNK
     Route: 048
     Dates: start: 200808

REACTIONS (2)
  - Sudden death [Fatal]
  - Drug interaction [Unknown]
